FAERS Safety Report 25031298 (Version 1)
Quarter: 2025Q1

REPORT INFORMATION
  Report Type: Spontaneous
  Country: US (occurrence: None)
  Receive Date: 20250228
  Receipt Date: 20250228
  Transmission Date: 20250408
  Serious: Yes (unspecified)
  Sender: FDA-CTU
  Company Number: None

PATIENT
  Age: 13 Year
  Sex: Female
  Weight: 63 kg

DRUGS (4)
  1. QELBREE [Suspect]
     Active Substance: VILOXAZINE HYDROCHLORIDE
     Indication: Attention deficit hyperactivity disorder
     Route: 048
     Dates: start: 20250217, end: 20250228
  2. ESCITALOPRAM [Concomitant]
     Active Substance: ESCITALOPRAM OXALATE
  3. RISPERIDONE [Concomitant]
     Active Substance: RISPERIDONE
  4. GUANFACINE [Concomitant]
     Active Substance: GUANFACINE

REACTIONS (5)
  - Somnolence [None]
  - Headache [None]
  - Dizziness [None]
  - Gait disturbance [None]
  - Insomnia [None]

NARRATIVE: CASE EVENT DATE: 20250228
